FAERS Safety Report 6660527 (Version 2)
Quarter: 2013Q3

REPORT INFORMATION
  Report Type: Report from Study
  Country: DE (occurrence: DE)
  Receive Date: 20080609
  Receipt Date: 20130918
  Transmission Date: 20140515
  Serious: Yes (Hospitalization)
  Sender: FDA-Public Use
  Company Number: DE-ROCHE-566966

PATIENT
  Age: 19 Year
  Sex: Male
  Weight: 88 kg

DRUGS (1)
  1. PEG-INTERFERON ALFA 2A [Suspect]
     Indication: MALIGNANT MELANOMA
     Dosage: DOSAGE FORM AS PER PROTOCOL: PRE-FILLED SYRINGE. FREQUENCY AS PER PROTOCOL: ONCE WEEKLY.
     Route: 058
     Dates: start: 20070824, end: 20080527

REACTIONS (2)
  - Rhabdomyolysis [Not Recovered/Not Resolved]
  - Hepatic enzyme increased [Recovered/Resolved]
